FAERS Safety Report 12839085 (Version 2)
Quarter: 2017Q1

REPORT INFORMATION
  Report Type: Spontaneous
  Country: US (occurrence: US)
  Receive Date: 20161012
  Receipt Date: 20170110
  Transmission Date: 20170428
  Serious: No
  Sender: FDA-Public Use
  Company Number: US-TEVA-672290USA

PATIENT
  Age: 57 Year
  Sex: Female

DRUGS (1)
  1. ZECUITY [Suspect]
     Active Substance: SUMATRIPTAN SUCCINATE
     Route: 062

REACTIONS (8)
  - Application site bruise [Unknown]
  - Product leakage [Unknown]
  - Blood blister [Unknown]
  - Application site burn [Recovered/Resolved with Sequelae]
  - Application site erythema [Unknown]
  - Application site vesicles [Unknown]
  - Application site discolouration [Unknown]
  - Application site pruritus [Recovered/Resolved with Sequelae]

NARRATIVE: CASE EVENT DATE: 201606
